FAERS Safety Report 9251675 (Version 1)
Quarter: 2013Q1

REPORT INFORMATION
  Report Type: Spontaneous
  Country: US (occurrence: None)
  Receive Date: 20130305
  Receipt Date: 20130305
  Transmission Date: 20140127
  Serious: Yes (Other)
  Sender: FDA-Public Use
  Company Number: 163-21880-12071690

PATIENT
  Age: 62 Year
  Sex: Male

DRUGS (1)
  1. REVLIMID  (LENALIDOMIDE) [Suspect]
     Indication: PLASMA CELL MYELOMA
     Dosage: 21 IN 28 D
     Route: 048
     Dates: start: 20120619

REACTIONS (3)
  - Pneumonia [None]
  - Dyspnoea [None]
  - Oropharyngeal pain [None]
